FAERS Safety Report 16121191 (Version 2)
Quarter: 2019Q2

REPORT INFORMATION
  Report Type: Spontaneous
  Country: ES (occurrence: ES)
  Receive Date: 20190327
  Receipt Date: 20190420
  Transmission Date: 20190711
  Serious: Yes (Life-Threatening, Other)
  Sender: FDA-Public Use
  Company Number: ES-ACCORD-114985

PATIENT
  Age: 37 Year
  Sex: Female
  Weight: 60 kg

DRUGS (6)
  1. MEROPENEM. [Concomitant]
     Active Substance: MEROPENEM
     Indication: PROPHYLAXIS
     Dosage: UNK UNK, UNKNOWN FREQ.
     Route: 065
  2. MICAFUNGIN/MICAFUNGIN SODIUM [Suspect]
     Active Substance: MICAFUNGIN SODIUM
     Indication: PROPHYLAXIS
     Dosage: 150 MG, ONCE DAILY (1 TO 21 POD)
     Route: 042
  3. MYCOPHENOLIC ACID. [Suspect]
     Active Substance: MYCOPHENOLIC ACID
     Indication: LUNG TRANSPLANT
     Dosage: UNK UNK, UNKNOWN FREQ.
     Route: 065
  4. SULFAMETHOXAZOLE/TRIMETHOPRIM [Concomitant]
     Indication: PROPHYLAXIS
     Dosage: UNK UNK, UNKNOWN FREQ.
     Route: 065
  5. TACROLIMUS. [Suspect]
     Active Substance: TACROLIMUS
     Indication: LUNG TRANSPLANT
     Dosage: UNK UNK, UNKNOWN FREQ.
     Route: 065
  6. GANCICLOVIR. [Concomitant]
     Active Substance: GANCICLOVIR
     Indication: PROPHYLAXIS
     Dosage: UNK UNK, UNKNOWN FREQ.
     Route: 065

REACTIONS (4)
  - Scedosporium infection [Recovered/Resolved]
  - Pseudomonas infection [Recovered/Resolved]
  - Tracheobronchitis [Recovered/Resolved]
  - Fungal infection [Recovered/Resolved]
